FAERS Safety Report 7207995-1 (Version None)
Quarter: 2010Q4

REPORT INFORMATION
  Report Type: 
  Country: None (occurrence: None)
  Receive Date: 20101222
  Receipt Date: 20101214
  Transmission Date: 20110411
  Serious: Yes (Death)
  Sender: FDA-Public Use
  Company Number: UTC-003282

PATIENT
  Age: 41 Year
  Sex: Male

DRUGS (4)
  1. REMODULIN [Suspect]
     Indication: PULMONARY ARTERIAL HYPERTENSION
     Dosage: 69.12 UG/KG (0.048 UG/KG,1 IN 1 MIN), INTRAVENOUS
     Route: 042
     Dates: start: 20100112
  2. DIURETICS(DIURETICS) [Concomitant]
  3. COUMADIN [Concomitant]
  4. DIGOXIN [Concomitant]

REACTIONS (1)
  - DEATH [None]
